FAERS Safety Report 15259223 (Version 1)
Quarter: 2018Q3

REPORT INFORMATION
  Report Type: Spontaneous
  Country: GB (occurrence: GB)
  Receive Date: 20180809
  Receipt Date: 20180809
  Transmission Date: 20181010
  Serious: Yes (Hospitalization, Disabling)
  Sender: FDA-Public Use
  Company Number: GB-LPDUSPRD-20181405

PATIENT
  Age: 28 Year
  Sex: Female
  Weight: 61.6 kg

DRUGS (2)
  1. FERINJECT [Suspect]
     Active Substance: FERRIC CARBOXYMALTOSE
     Dosage: 1000 MG
     Route: 042
     Dates: start: 20180701, end: 20180701
  2. FERROUS SULFATE. [Concomitant]
     Active Substance: FERROUS SULFATE
     Dosage: 200 MG
     Route: 048
     Dates: end: 20180701

REACTIONS (3)
  - Syncope [Recovered/Resolved with Sequelae]
  - Unresponsive to stimuli [Recovered/Resolved with Sequelae]
  - Maternal exposure during pregnancy [Unknown]

NARRATIVE: CASE EVENT DATE: 20180701
